FAERS Safety Report 22025397 (Version 1)
Quarter: 2023Q1

REPORT INFORMATION
  Report Type: Spontaneous
  Country: US (occurrence: None)
  Receive Date: 20230223
  Receipt Date: 20230223
  Transmission Date: 20230418
  Serious: No
  Sender: FDA-Public Use
  Company Number: US-ROCHE-3106159

PATIENT
  Sex: Female
  Weight: 109.4 kg

DRUGS (2)
  1. XOLAIR [Suspect]
     Active Substance: OMALIZUMAB
     Indication: Asthma
     Dosage: FORM STRENGTH : 150MG/ML
     Route: 058
     Dates: start: 20220322
  2. XOLAIR [Suspect]
     Active Substance: OMALIZUMAB
     Dosage: FORM STRENGTH : 75MG/0.5ML
     Route: 058
     Dates: start: 20220322

REACTIONS (2)
  - Breast pain [Unknown]
  - Amenorrhoea [Unknown]
